FAERS Safety Report 8537672-6 (Version None)
Quarter: 2012Q3

REPORT INFORMATION
  Report Type: 
  Country: None (occurrence: None)
  Receive Date: 20120725
  Receipt Date: 20120721
  Transmission Date: 20120928
  Serious: Yes (Other)
  Sender: FDA-Public Use
  Company Number: PHHY2012BR063828

PATIENT
  Sex: Female
  Weight: 74 kg

DRUGS (1)
  1. DIOVAN [Suspect]
     Indication: HYPERTENSION
     Dosage: 1 DF(UNKNOWN), DAILY

REACTIONS (2)
  - PNEUMONIA [None]
  - RHINITIS ALLERGIC [None]
